FAERS Safety Report 6440299-3 (Version None)
Quarter: 2009Q4

REPORT INFORMATION
  Report Type: 
  Country: None (occurrence: None)
  Receive Date: 20091112
  Receipt Date: 20091112
  Transmission Date: 20100525
  Serious: Yes (Death)
  Sender: FDA-Public Use
  Company Number: None

PATIENT
  Sex: Male

DRUGS (2)
  1. NIASPAN [Suspect]
     Indication: BLOOD CHOLESTEROL
     Dosage: 1500 MG ONCE A DAY PO
     Route: 048
     Dates: start: 20070523, end: 20090421
  2. EZETIMIBE [Suspect]
     Dosage: 10 MG ONCE A DAY PO
     Route: 048
     Dates: start: 20070523, end: 20090421

REACTIONS (1)
  - DEATH [None]
